FAERS Safety Report 7205859-0 (Version None)
Quarter: 2010Q4

REPORT INFORMATION
  Report Type: 
  Country: None (occurrence: None)
  Receive Date: 20101231
  Receipt Date: 20101221
  Transmission Date: 20110411
  Serious: Yes (Other)
  Sender: FDA-Public Use
  Company Number: AR-AMGEN-ARGSP2010010810

PATIENT

DRUGS (2)
  1. ENBREL [Suspect]
     Dosage: UNK
  2. ENBREL [Suspect]
     Dosage: 50 MG, WEEKLY
     Route: 058
     Dates: start: 20080101

REACTIONS (2)
  - BREAST PAIN [None]
  - PROSTHESIS IMPLANTATION [None]
